FAERS Safety Report 5843369-3 (Version None)
Quarter: 2008Q3

REPORT INFORMATION
  Report Type: 
  Country: None (occurrence: None)
  Receive Date: 20080811
  Receipt Date: 20080725
  Transmission Date: 20090109
  Serious: Yes (Hospitalization, Other)
  Sender: FDA-Public Use
  Company Number: 20080093

PATIENT
  Age: 22 Year
  Sex: Female

DRUGS (3)
  1. VENOFER [Suspect]
     Indication: IRON DEFICIENCY ANAEMIA
     Dosage: 100 MG. BOLUS OVER; 20 MG/ML
     Route: 042
     Dates: start: 20080328, end: 20080328
  2. ACETAMINOPHEN [Concomitant]
  3. LORNOXICAM [Concomitant]

REACTIONS (9)
  - ANOREXIA [None]
  - DIZZINESS [None]
  - EYE MOVEMENT DISORDER [None]
  - FACIAL PARESIS [None]
  - OSMOPHOBIA [None]
  - PHONOPHOBIA [None]
  - PHOTOPHOBIA [None]
  - POST LUMBAR PUNCTURE SYNDROME [None]
  - VIRAL INFECTION [None]
